FAERS Safety Report 14142928 (Version 2)
Quarter: 2017Q4

REPORT INFORMATION
  Report Type: Spontaneous
  Country: US (occurrence: US)
  Receive Date: 20171030
  Receipt Date: 20171121
  Transmission Date: 20180321
  Serious: Yes (Death, Life-Threatening, Hospitalization)
  Sender: FDA-Public Use
  Company Number: US-EXELIXIS-CABO-17010904

PATIENT
  Age: 82 Year
  Sex: Male

DRUGS (6)
  1. ACTOS [Concomitant]
     Active Substance: PIOGLITAZONE HYDROCHLORIDE
     Indication: DIABETES MELLITUS
  2. LIPITOR [Concomitant]
     Active Substance: ATORVASTATIN CALCIUM
  3. HCTZ [Concomitant]
     Active Substance: HYDROCHLOROTHIAZIDE
     Indication: HYPERTENSION
  4. CABOMETYX [Suspect]
     Active Substance: CABOZANTINIB S-MALATE
     Indication: RENAL CANCER
     Dosage: 30 MG, QD
     Route: 048
     Dates: start: 20170818, end: 201709
  5. CABOMETYX [Suspect]
     Active Substance: CABOZANTINIB S-MALATE
     Dosage: 40 MG, QD
     Route: 048
     Dates: start: 201709, end: 20171003
  6. OMEPRAZOLE. [Concomitant]
     Active Substance: OMEPRAZOLE

REACTIONS (12)
  - Pyrexia [Unknown]
  - Nausea [Unknown]
  - Fall [Unknown]
  - Blood sodium decreased [Unknown]
  - Malignant neoplasm progression [Fatal]
  - Asthenia [Unknown]
  - Bone pain [Unknown]
  - Decreased appetite [Unknown]
  - Abdominal pain [Unknown]
  - Chills [Unknown]
  - Blood potassium decreased [Unknown]
  - Rash [Unknown]

NARRATIVE: CASE EVENT DATE: 201709
